FAERS Safety Report 7907668-3 (Version None)
Quarter: 2011Q4

REPORT INFORMATION
  Report Type: 
  Country: None (occurrence: None)
  Receive Date: 20111109
  Receipt Date: 20111109
  Transmission Date: 20120403
  Serious: Yes (Other)
  Sender: FDA-Public Use
  Company Number: None

PATIENT
  Age: 58 Year
  Sex: Female
  Weight: 85 kg

DRUGS (3)
  1. PHENYTOIN SODIUM [Suspect]
     Indication: EPILEPSY
     Dosage: 300 MG, DAILY, ORAL
     Route: 048
     Dates: start: 20110527
  2. QUALITEST [Concomitant]
  3. PRIMIDONE [Concomitant]

REACTIONS (8)
  - TREMOR [None]
  - BURNING SENSATION [None]
  - MUSCLE TWITCHING [None]
  - FEELING ABNORMAL [None]
  - DIZZINESS [None]
  - COORDINATION ABNORMAL [None]
  - BALANCE DISORDER [None]
  - PANIC DISORDER [None]
